FAERS Safety Report 21729144 (Version 1)
Quarter: 2022Q4

REPORT INFORMATION
  Report Type: Spontaneous
  Country: US (occurrence: US)
  Receive Date: 20221214
  Receipt Date: 20221214
  Transmission Date: 20230113
  Serious: Yes (Other)
  Sender: FDA-Public Use
  Company Number: US-SA-SAC20221214000001

PATIENT
  Age: 65 Year
  Sex: Female

DRUGS (8)
  1. AUBAGIO [Suspect]
     Active Substance: TERIFLUNOMIDE
     Indication: Multiple sclerosis
     Dosage: 14 MG, QD
     Route: 048
     Dates: start: 20170629
  2. IRBESARTAN [Concomitant]
     Active Substance: IRBESARTAN
  3. BIOTIN [Concomitant]
     Active Substance: BIOTIN
  4. FLAXSEED [Concomitant]
     Active Substance: FLAX SEED
  5. HYDROCHLOROTHIAZIDE [Concomitant]
     Active Substance: HYDROCHLOROTHIAZIDE
  6. OMEPRAZOLE [Concomitant]
     Active Substance: OMEPRAZOLE
  7. VITAMIN D NOS [Concomitant]
     Active Substance: VITAMIN D NOS
  8. ADDERALL [Concomitant]
     Active Substance: AMPHETAMINE ASPARTATE\AMPHETAMINE SULFATE\DEXTROAMPHETAMINE SACCHARATE\DEXTROAMPHETAMINE SULFATE

REACTIONS (4)
  - Multiple sclerosis [Unknown]
  - Blood pressure abnormal [Recovering/Resolving]
  - Memory impairment [Unknown]
  - Condition aggravated [Unknown]

NARRATIVE: CASE EVENT DATE: 20221101
